FAERS Safety Report 13446021 (Version 1)
Quarter: 2017Q2

REPORT INFORMATION
  Report Type: Report from Study
  Country: US (occurrence: US)
  Receive Date: 20170417
  Receipt Date: 20170417
  Transmission Date: 20170830
  Serious: Yes (Hospitalization, Other)
  Sender: FDA-Public Use
  Company Number: US-ROCHE-1918065

PATIENT
  Age: 35 Year
  Sex: Female

DRUGS (6)
  1. INDERAL LA [Concomitant]
     Active Substance: PROPRANOLOL HYDROCHLORIDE
     Route: 065
  2. SUMATRIPTAN SUCCINATE. [Concomitant]
     Active Substance: SUMATRIPTAN SUCCINATE
     Indication: HEADACHE
     Route: 065
  3. CELEXA [Concomitant]
     Active Substance: CITALOPRAM HYDROBROMIDE
     Route: 065
  4. XOLAIR [Suspect]
     Active Substance: OMALIZUMAB
     Indication: ASTHMA
     Route: 058
  5. ADVAIR HFA [Concomitant]
     Active Substance: FLUTICASONE PROPIONATE\SALMETEROL XINAFOATE
     Dosage: BREATH ACTIVATED?500-50
     Route: 055
  6. ALBUTEROL SULFATE. [Concomitant]
     Active Substance: ALBUTEROL SULFATE

REACTIONS (11)
  - Hypersensitivity [Unknown]
  - Asthma [Unknown]
  - Dyspnoea [Unknown]
  - Ovarian disorder [Recovered/Resolved]
  - Dermatitis contact [Unknown]
  - Ovarian neoplasm [Unknown]
  - Rash [Unknown]
  - Glaucoma [Unknown]
  - Migraine [Unknown]
  - Pulmonary congestion [Unknown]
  - Blood immunoglobulin E increased [Unknown]

NARRATIVE: CASE EVENT DATE: 201612
